FAERS Safety Report 22224209 (Version 2)
Quarter: 2023Q2

REPORT INFORMATION
  Report Type: Report from Study
  Country: US (occurrence: US)
  Receive Date: 20230418
  Receipt Date: 20230630
  Transmission Date: 20230721
  Serious: Yes (Other)
  Sender: FDA-Public Use
  Company Number: US-ABBVIE-4732991

PATIENT
  Sex: Male
  Weight: 73.935 kg

DRUGS (5)
  1. VENCLEXTA [Suspect]
     Active Substance: VENETOCLAX
     Indication: Chronic lymphocytic leukaemia
     Dosage: FORM STRENGTH: 100 MILLIGRAM
     Route: 048
     Dates: start: 202204
  2. ACYCLOVIR [Concomitant]
     Active Substance: ACYCLOVIR
     Indication: Herpes zoster
     Route: 048
     Dates: start: 2000
  3. DUTASTERIDE [Concomitant]
     Active Substance: DUTASTERIDE
     Indication: Benign prostatic hyperplasia
     Route: 048
     Dates: start: 2010
  4. CALCARB WITH VITAMIN D [Concomitant]
     Indication: Vitamin D decreased
     Dosage: START DATE TEXT: 1975 + 2023
     Route: 048
  5. HERBALS\TURMERIC [Concomitant]
     Active Substance: HERBALS\TURMERIC
     Indication: Tendonitis
     Dates: start: 2017

REACTIONS (2)
  - Basal cell carcinoma [Not Recovered/Not Resolved]
  - Unevaluable event [Unknown]
